FAERS Safety Report 16675046 (Version 1)
Quarter: 2019Q3

REPORT INFORMATION
  Report Type: Spontaneous
  Country: US (occurrence: US)
  Receive Date: 20190806
  Receipt Date: 20190806
  Transmission Date: 20191004
  Serious: Yes (Hospitalization)
  Sender: FDA-Public Use
  Company Number: US-TEVA-2019-US-1087220

PATIENT
  Age: 30 Year
  Sex: Female

DRUGS (5)
  1. METHYLPREDNISOLONE. [Suspect]
     Active Substance: METHYLPREDNISOLONE
     Indication: RELAPSING-REMITTING MULTIPLE SCLEROSIS
     Dosage: PRE-TREATED EACH DAY
     Route: 042
  2. ALEMTUZUMAB [Suspect]
     Active Substance: ALEMTUZUMAB
     Indication: RELAPSING-REMITTING MULTIPLE SCLEROSIS
     Dosage: 25 CC/H OR 3 MG/H FOR A TOTAL OF 12MG IN 100ML OF IV 0.9 NORMAL SALINE PER USUAL PROTOCOL
     Route: 041
  3. ACETAMINOPHEN. [Concomitant]
     Active Substance: ACETAMINOPHEN
     Dosage: PRE-TREATED EACH DAY
     Route: 065
  4. OXYCODONE [Concomitant]
     Active Substance: OXYCODONE
     Indication: BACK PAIN
     Route: 065
  5. NORMAL SALINE [Concomitant]
     Active Substance: SODIUM CHLORIDE
     Dosage: ALEMTUZUMAB 25 CC/H OR 3 MG/H FOR A TOTAL OF 12MG IN 100ML OF IV 0.9 NORMAL SALINE
     Route: 041

REACTIONS (2)
  - Rash erythematous [Recovering/Resolving]
  - Acute myocardial infarction [Recovered/Resolved]
